FAERS Safety Report 5527999-4 (Version None)
Quarter: 2007Q4

REPORT INFORMATION
  Report Type: 
  Country: None (occurrence: None)
  Receive Date: 20071128
  Receipt Date: 20071119
  Transmission Date: 20080405
  Serious: Yes (Hospitalization)
  Sender: FDA-Public Use
  Company Number: ES-ASTRAZENECA-2007AC02294

PATIENT
  Age: 77 Year
  Sex: Male
  Weight: 72 kg

DRUGS (3)
  1. CASODEX [Suspect]
     Indication: PROSTATE CANCER
     Route: 048
  2. ZOLADEX [Concomitant]
     Indication: PROSTATE CANCER
     Dosage: TRIMESTRA
     Route: 058
  3. SINTROM [Concomitant]
     Indication: MYOCARDIAL INFARCTION
     Route: 048

REACTIONS (1)
  - VITREOUS DISORDER [None]
